FAERS Safety Report 25576251 (Version 2)
Quarter: 2025Q3

REPORT INFORMATION
  Report Type: Spontaneous
  Country: EU (occurrence: EU)
  Receive Date: 20250718
  Receipt Date: 20250731
  Transmission Date: 20251021
  Serious: Yes (Other)
  Sender: AUROBINDO
  Company Number: EU-MLMSERVICE-20250630-PI559668-00082-1

PATIENT
  Age: 55 Year
  Sex: Male

DRUGS (8)
  1. GEMCITABINE [Suspect]
     Active Substance: GEMCITABINE
     Indication: Metastases to lung
     Route: 065
  2. CARBOPLATIN [Suspect]
     Active Substance: CARBOPLATIN
     Indication: Metastases to lung
     Route: 065
  3. PREDNISOLONE [Concomitant]
     Active Substance: PREDNISOLONE
     Indication: Metastases to lung
     Dosage: 5 MILLIGRAM, ONCE A DAY (TAPERED TO A MAINTENANCE DOSE)
     Route: 065
  4. PREDNISOLONE [Concomitant]
     Active Substance: PREDNISOLONE
     Indication: Metastases to the mediastinum
     Route: 065
  5. PREDNISOLONE [Concomitant]
     Active Substance: PREDNISOLONE
     Indication: Metastases to spine
  6. PREDNISOLONE [Concomitant]
     Active Substance: PREDNISOLONE
     Indication: Metastases to bone
  7. PREDNISOLONE [Concomitant]
     Active Substance: PREDNISOLONE
     Indication: Transitional cell cancer of the renal pelvis and ureter
  8. PREDNISOLONE [Concomitant]
     Active Substance: PREDNISOLONE
     Indication: Retroperitoneal fibrosis

REACTIONS (1)
  - Toxicity to various agents [Unknown]
